FAERS Safety Report 6358510-6 (Version None)
Quarter: 2009Q3

REPORT INFORMATION
  Report Type: 
  Country: None (occurrence: None)
  Receive Date: 20090916
  Receipt Date: 20090909
  Transmission Date: 20100115
  Serious: Yes (Other)
  Sender: FDA-Public Use
  Company Number: US-AMGEN-QUU337492

PATIENT
  Sex: Male

DRUGS (7)
  1. ENBREL [Suspect]
     Indication: PSORIASIS
     Route: 058
     Dates: start: 20080122
  2. ZOLOFT [Concomitant]
  3. METHOTREXATE [Concomitant]
  4. PROPOXYPHENE HCL CAP [Concomitant]
  5. CLINDAMYCIN [Concomitant]
  6. XANAX [Concomitant]
  7. UNSPECIFIED MEDICATION [Concomitant]

REACTIONS (5)
  - CATARACT [None]
  - ECZEMA INFECTED [None]
  - PSORIASIS [None]
  - STAPHYLOCOCCAL SKIN INFECTION [None]
  - VISION BLURRED [None]
